FAERS Safety Report 7726637-X (Version None)
Quarter: 2011Q3

REPORT INFORMATION
  Report Type: 
  Country: None (occurrence: None)
  Receive Date: 20110902
  Receipt Date: 20110825
  Transmission Date: 20111222
  Serious: Yes (Other)
  Sender: FDA-Public Use
  Company Number: PHHY2011VE77159

PATIENT
  Sex: Female

DRUGS (2)
  1. ZOLEDRONOC ACID [Suspect]
     Indication: OSTEOPOROSIS
     Dosage: 5 MG
     Route: 042
     Dates: start: 20110501
  2. CALCIBON D [Concomitant]
     Dosage: 1,500 MG (EQUIV.) TO 315 MG OF ELEMENTAL CALCIUM; VIT D3 200UI

REACTIONS (2)
  - BACK PAIN [None]
  - SPINAL OSTEOARTHRITIS [None]
